FAERS Safety Report 20495254 (Version 1)
Quarter: 2022Q1

REPORT INFORMATION
  Report Type: Spontaneous
  Country: US (occurrence: US)
  Receive Date: 20220221
  Receipt Date: 20220221
  Transmission Date: 20220423
  Serious: Yes (Hospitalization, Other)
  Sender: FDA-Public Use
  Company Number: US-PFIZER INC-202200231223

PATIENT
  Age: 79 Year
  Sex: Female

DRUGS (1)
  1. XALKORI [Suspect]
     Active Substance: CRIZOTINIB
     Indication: Lung neoplasm malignant
     Dosage: 250 MG

REACTIONS (5)
  - Fall [Unknown]
  - Upper limb fracture [Unknown]
  - Ankle fracture [Unknown]
  - Pain [Unknown]
  - Thinking abnormal [Unknown]

NARRATIVE: CASE EVENT DATE: 20220101
